FAERS Safety Report 22152881 (Version 1)
Quarter: 2023Q1

REPORT INFORMATION
  Report Type: Spontaneous
  Country: US (occurrence: US)
  Receive Date: 20230329
  Receipt Date: 20230329
  Transmission Date: 20230417
  Serious: No
  Sender: FDA-Public Use
  Company Number: US-INCYTE CORPORATION-2023IN002198

PATIENT

DRUGS (7)
  1. PEMAZYRE [Suspect]
     Active Substance: PEMIGATINIB
     Indication: Cholangiocarcinoma
     Dosage: 13.5 MILLIGRAM, QD, 2 WEEKS FOLLOWED BY 1 WEEK OFF THERAPY
     Route: 065
     Dates: start: 20220215
  2. HERBALS\TURMERIC [Suspect]
     Active Substance: HERBALS\TURMERIC
     Dosage: 1 TEA SPOON OF TURMERIC, IT^S AN HERB OR A ROOT
     Route: 065
  3. LEVOTHYROXINE [Concomitant]
     Active Substance: LEVOTHYROXINE
     Indication: Product used for unknown indication
     Route: 065
  4. CLONAZEPAM [Concomitant]
     Active Substance: CLONAZEPAM
     Indication: Product used for unknown indication
     Dosage: 0.5 MILLIGRAM, QD
     Route: 065
  5. PROBIOTIC ACIDOPHILUS [CALCIUM PHOSPHATE DIBASIC;LACTOBACILLUS ACIDOPH [Concomitant]
     Indication: Product used for unknown indication
     Dosage: PB 8 PROBIOTIC ACIDOPHILUS
     Route: 065
  6. VITAMIN D3 [Concomitant]
     Active Substance: CHOLECALCIFEROL
     Indication: Product used for unknown indication
     Route: 065
  7. GENTAMICIN [Concomitant]
     Active Substance: GENTAMICIN
     Indication: Nail disorder
     Dosage: UNK UNK, QD
     Route: 065

REACTIONS (4)
  - Carbohydrate antigen 19-9 increased [Unknown]
  - Nail disorder [Unknown]
  - Epistaxis [Unknown]
  - Drug interaction [Unknown]
